FAERS Safety Report 7238879-0 (Version None)
Quarter: 2011Q1

REPORT INFORMATION
  Report Type: 
  Country: None (occurrence: None)
  Receive Date: 20110121
  Receipt Date: 20110117
  Transmission Date: 20110831
  Serious: Yes (Death, Hospitalization)
  Sender: FDA-Public Use
  Company Number: PHHY2010NL75530

PATIENT
  Sex: Male

DRUGS (3)
  1. ZOMETA [Suspect]
     Indication: PROSTATE CANCER METASTATIC
     Dosage: 4 MG/5 ML,  1X PER 84 DAYS
     Dates: start: 20080417
  2. ZOMETA [Suspect]
     Dosage: 4 MG/5 ML,  1X PER 84 DAYS
     Dates: start: 20100817
  3. ZOMETA [Suspect]
     Dosage: 4 MG/5 ML
     Dates: start: 20101109

REACTIONS (2)
  - METASTASES TO CENTRAL NERVOUS SYSTEM [None]
  - DEATH [None]
